FAERS Safety Report 7815457-3 (Version None)
Quarter: 2011Q4

REPORT INFORMATION
  Report Type: 
  Country: None (occurrence: None)
  Receive Date: 20111014
  Receipt Date: 20111005
  Transmission Date: 20120403
  Serious: Yes (Hospitalization, Other)
  Sender: FDA-Public Use
  Company Number: PHEH2008US03405

PATIENT
  Sex: Male

DRUGS (45)
  1. INTERFERON [Concomitant]
  2. TRAMADOL HCL [Concomitant]
     Dosage: 50 MG, UNK
  3. CLINDAMYCIN [Concomitant]
     Dosage: 300 MG, UNK
  4. LIPITOR [Concomitant]
     Indication: HYPERCHOLESTEROLAEMIA
  5. BUMETANIDE [Concomitant]
     Dosage: 1 MG, UNK
     Route: 042
  6. LEVOFLOXACIN [Concomitant]
     Dosage: 500 MG, UNK
     Route: 042
  7. MEROPENEM [Concomitant]
     Dosage: 500 MG, QD
     Route: 042
  8. AREDIA [Suspect]
     Dosage: UNK UKN, QMO
     Dates: end: 20070401
  9. LORTAB [Concomitant]
     Dosage: 5-500 MG, Q4H, PRN
  10. DORIPENEM MONOHYDRATE [Concomitant]
     Dosage: 250 MG, UNK
     Route: 042
  11. PULMOCARE [Concomitant]
  12. INSULIN HUMAN [Concomitant]
     Route: 058
  13. DECADRON [Concomitant]
  14. MIDAZOLAM                               /USA/ [Concomitant]
     Dosage: 2 MG, UNK
     Route: 042
  15. FONDAPARINUX SODIUM [Concomitant]
     Dosage: 2.5 MG, UNK
     Route: 058
  16. LANSOPRAZOLE [Concomitant]
     Dosage: 30 MG, UNK
     Route: 048
  17. REVLIMID [Concomitant]
     Dosage: 15 MG, QD
     Route: 048
  18. PROCRIT [Concomitant]
  19. ALTEPLASE [Concomitant]
     Dosage: 2 MG, UNK
     Route: 042
  20. METOLAZONE [Concomitant]
  21. HEPARIN LOCK-FLUSH [Concomitant]
     Dosage: 1 ML, UNK
     Route: 042
  22. PENICILLIN V POTASSIUM [Concomitant]
     Dosage: 1 TAB Q8 HRS
     Route: 048
  23. FLAGYL [Concomitant]
     Dates: start: 20080107
  24. METOPROLOL TARTRATE [Concomitant]
  25. LASIX [Concomitant]
     Dosage: 20 MG, UNK
     Route: 042
  26. CHLORHEXIDINE GLUCONATE [Concomitant]
  27. PRAVASTATIN [Concomitant]
  28. HYDROCODONE BITARTRATE [Concomitant]
  29. VANCOMYCIN HCL [Concomitant]
     Dosage: 750 MG, UNK
     Route: 042
  30. FENTANYL CITRATE [Concomitant]
     Dosage: 0.025 MG, UNK
     Route: 042
  31. COREG [Concomitant]
     Dosage: 25 MG, UNK
  32. BACTRIM [Concomitant]
     Route: 048
  33. LOMOTIL [Concomitant]
     Dosage: 2 DF, UNK
  34. MONTELUKAST SODIUM [Concomitant]
     Dosage: 1 DF, QHS
     Route: 048
  35. AMOXICILLIN [Concomitant]
     Dosage: 500 MG, UNK
     Dates: start: 20080107
  36. INTRON [Concomitant]
  37. MICAFUNGIN [Concomitant]
     Dosage: 100 MG, UNK
     Route: 042
  38. AMPICILLIN SODIUM [Concomitant]
     Dosage: 2 G, UNK
     Route: 042
  39. PERIDEX [Concomitant]
     Dosage: 15 CM3 FOR 30 SEC, TID
  40. AMOXAPINE [Concomitant]
  41. LISINOPRIL [Concomitant]
     Indication: HYPERTENSION
  42. VERAPAMIL [Concomitant]
     Dosage: 240 MG, UNK
     Route: 048
  43. DAPTOMYCIN [Concomitant]
     Dosage: 320 MG, UNK
     Route: 042
  44. PANTOPRAZOLE [Concomitant]
  45. LEVAQUIN [Concomitant]
     Dosage: 750 MG, QD
     Route: 042

REACTIONS (59)
  - COLONIC POLYP [None]
  - OCCULT BLOOD POSITIVE [None]
  - BONE DISORDER [None]
  - COMPRESSION FRACTURE [None]
  - URINARY TRACT INFECTION [None]
  - AORTIC DILATATION [None]
  - CELLULITIS [None]
  - PNEUMONIA [None]
  - CONVULSION [None]
  - NASOPHARYNGEAL CANCER [None]
  - SKIN DISORDER [None]
  - OSTEONECROSIS OF JAW [None]
  - INTERVERTEBRAL DISC DEGENERATION [None]
  - BACK PAIN [None]
  - HYPERPLASIA [None]
  - ANGINA PECTORIS [None]
  - OSTEOLYSIS [None]
  - ANAEMIA [None]
  - MULTIPLE MYELOMA [None]
  - AORTIC ARTERIOSCLEROSIS [None]
  - FUNGAEMIA [None]
  - DYSARTHRIA [None]
  - APHONIA [None]
  - NEOPLASM MALIGNANT [None]
  - INTERVERTEBRAL DISC COMPRESSION [None]
  - GENERAL PHYSICAL HEALTH DETERIORATION [None]
  - OSTEOMYELITIS [None]
  - RHINORRHOEA [None]
  - SPINAL OSTEOARTHRITIS [None]
  - CATARACT [None]
  - MALNUTRITION [None]
  - PAIN [None]
  - LUMBAR SPINAL STENOSIS [None]
  - SEPSIS SYNDROME [None]
  - HYPERNATRAEMIA [None]
  - HYPOAESTHESIA ORAL [None]
  - RENAL FAILURE [None]
  - ATELECTASIS [None]
  - ENCEPHALOPATHY [None]
  - PYREXIA [None]
  - TOOTH ABSCESS [None]
  - ENDOCARDITIS [None]
  - THROMBOCYTOPENIA [None]
  - DIARRHOEA [None]
  - ANXIETY [None]
  - BONE PAIN [None]
  - PAIN IN JAW [None]
  - ARTHRALGIA [None]
  - GASTROINTESTINAL DISORDER [None]
  - METASTASES TO BONE [None]
  - RESPIRATORY FAILURE [None]
  - JOINT EFFUSION [None]
  - INFECTION [None]
  - ORAL CAVITY FISTULA [None]
  - ORAL DISORDER [None]
  - WEIGHT DECREASED [None]
  - TACHYCARDIA [None]
  - DYSPHAGIA [None]
  - OEDEMA [None]
